FAERS Safety Report 20746866 (Version 1)
Quarter: 2022Q2

REPORT INFORMATION
  Report Type: Spontaneous
  Country: US (occurrence: US)
  Receive Date: 20220425
  Receipt Date: 20220425
  Transmission Date: 20220721
  Serious: Yes (Other)
  Sender: FDA-Public Use
  Company Number: US-PFIZER INC-202200604392

PATIENT
  Age: 64 Year
  Sex: Female
  Weight: 83.909 kg

DRUGS (1)
  1. PAXLOVID [Suspect]
     Active Substance: NIRMATRELVIR\RITONAVIR
     Indication: COVID-19 treatment
     Dosage: UNK, 2X/DAY (2 NIRMATRELVIR 150MG TABLETS AND 1 RITONAVIR 100MG TABLET TWICE DAILY FOR 5 DAYS)
     Dates: start: 20220418

REACTIONS (2)
  - Product taste abnormal [Not Recovered/Not Resolved]
  - Taste disorder [Not Recovered/Not Resolved]

NARRATIVE: CASE EVENT DATE: 20220418
